FAERS Safety Report 6638574-2 (Version None)
Quarter: 2010Q1

REPORT INFORMATION
  Report Type: 
  Country: None (occurrence: None)
  Receive Date: 20100316
  Receipt Date: 20100316
  Transmission Date: 20100710
  Serious: Yes (Life-Threatening, Hospitalization)
  Sender: FDA-Public Use
  Company Number: None

PATIENT
  Age: 51 Year
  Sex: Female
  Weight: 63.5 kg

DRUGS (7)
  1. ACETAMINOPHEN UNKNOWN UNKNOWN [Suspect]
     Indication: ABDOMINAL PAIN
     Dosage: 8-9 TABS PER DAY PO
     Route: 048
     Dates: start: 20100224, end: 20100306
  2. MONTELUKAST SODIUM [Concomitant]
  3. ALBUTEROL [Concomitant]
  4. OMEPRAZOLE [Concomitant]
  5. FONDAPARIN [Concomitant]
  6. OXYCODONE [Concomitant]
  7. SYMBICORT [Concomitant]

REACTIONS (6)
  - ABDOMINAL PAIN [None]
  - DRUG TOXICITY [None]
  - HEADACHE [None]
  - MEDICATION ERROR [None]
  - NAUSEA [None]
  - OVERDOSE [None]
